FAERS Safety Report 11913311 (Version 1)
Quarter: 2016Q1

REPORT INFORMATION
  Report Type: Spontaneous
  Country: MX (occurrence: MX)
  Receive Date: 20160113
  Receipt Date: 20160113
  Transmission Date: 20160526
  Serious: Yes (Other)
  Sender: FDA-Public Use
  Company Number: MX-BRISTOL-MYERS SQUIBB COMPANY-BMS-2015-093295

PATIENT
  Age: 23 Year
  Sex: Male

DRUGS (1)
  1. WARFARIN SODIUM. [Suspect]
     Active Substance: WARFARIN SODIUM
     Indication: ANTICOAGULANT THERAPY
     Dosage: 5 MG, QD
     Route: 048

REACTIONS (5)
  - Epistaxis [Unknown]
  - Haemothorax [Unknown]
  - Haematuria [Unknown]
  - Pericardial effusion [Unknown]
  - Gastrointestinal haemorrhage [Unknown]
